FAERS Safety Report 25796761 (Version 1)
Quarter: 2025Q3

REPORT INFORMATION
  Report Type: Spontaneous
  Country: US (occurrence: US)
  Receive Date: 20250912
  Receipt Date: 20250912
  Transmission Date: 20251021
  Serious: No
  Sender: ANI
  Company Number: US-ANIPHARMA-2025-US-016596

PATIENT
  Age: 63 Year
  Sex: Female

DRUGS (15)
  1. CORTICOTROPIN [Suspect]
     Active Substance: CORTICOTROPIN
     Indication: Rheumatoid arthritis
     Route: 058
  2. LINZESS [Concomitant]
     Active Substance: LINACLOTIDE
  3. D3 HIGH POTENCY [Concomitant]
  4. SOLIFENACIN SUCCINATE [Concomitant]
     Active Substance: SOLIFENACIN SUCCINATE
  5. SPIRONOLACTONE [Concomitant]
     Active Substance: SPIRONOLACTONE
  6. METHOTREXATE SODIUM [Concomitant]
     Active Substance: METHOTREXATE SODIUM
  7. B12 [Concomitant]
  8. VITAMINS [Concomitant]
     Active Substance: VITAMINS
  9. ZETIA [Concomitant]
     Active Substance: EZETIMIBE
  10. LIPITOR [Concomitant]
     Active Substance: ATORVASTATIN CALCIUM
  11. MAXIMUM STRENGT   D3 [Concomitant]
  12. HUMALOG MIX75/25 [Concomitant]
     Active Substance: INSULIN LISPRO
  13. OMEPRAZOLE [Concomitant]
     Active Substance: OMEPRAZOLE
  14. CYMBALTA [Concomitant]
     Active Substance: DULOXETINE HYDROCHLORIDE
  15. PEPCID AC MAXIMUM STRENGTH [Concomitant]
     Active Substance: FAMOTIDINE

REACTIONS (5)
  - Oral herpes [Unknown]
  - Wound [Unknown]
  - Pruritus [Unknown]
  - Rash erythematous [Unknown]
  - Product dose omission issue [Recovered/Resolved]

NARRATIVE: CASE EVENT DATE: 20250623
